FAERS Safety Report 14813759 (Version 2)
Quarter: 2020Q1

REPORT INFORMATION
  Report Type: Spontaneous
  Country: US (occurrence: US)
  Receive Date: 20180426
  Receipt Date: 20200316
  Transmission Date: 20200409
  Serious: No
  Sender: FDA-Public Use
  Company Number: US-PFIZER INC-2018167749

PATIENT
  Age: 65 Year
  Sex: Female
  Weight: 68.4 kg

DRUGS (4)
  1. XELJANZ XR [Suspect]
     Active Substance: TOFACITINIB CITRATE
     Indication: ARTHRITIS
     Dosage: 11 MG, 1X/DAY
     Route: 048
     Dates: start: 20180413
  2. XELJANZ XR [Suspect]
     Active Substance: TOFACITINIB CITRATE
     Indication: FIBROMYALGIA
  3. VENTOLIN HFA [Concomitant]
     Active Substance: ALBUTEROL SULFATE
     Indication: INHALATION THERAPY
     Dosage: UNK, DAILY (1 PUFF DAILY; THE BOTTLE SAYS 90MG, BUT SHE DOESN^T KNOW IF THAT IS PER PUFF)
  4. LOSARTAN. [Suspect]
     Active Substance: LOSARTAN
     Indication: HYPERTENSION
     Dosage: 12.5 MG, 1X/DAY
     Route: 048

REACTIONS (4)
  - Blood pressure fluctuation [Unknown]
  - Hypotension [Not Recovered/Not Resolved]
  - Lung disorder [Recovered/Resolved]
  - Chest pain [Not Recovered/Not Resolved]

NARRATIVE: CASE EVENT DATE: 20180417
